FAERS Safety Report 24200778 (Version 1)
Quarter: 2024Q3

REPORT INFORMATION
  Report Type: Spontaneous
  Country: US (occurrence: US)
  Receive Date: 20240812
  Receipt Date: 20240812
  Transmission Date: 20241017
  Serious: Yes (Hospitalization)
  Sender: DOMPE FARMACEUTICI
  Company Number: US-FARMAPROD-202407-2493

PATIENT
  Age: 83 Year
  Sex: Female

DRUGS (26)
  1. OXERVATE [Suspect]
     Active Substance: CENEGERMIN-BKBJ
     Indication: Neurotrophic keratopathy
     Route: 047
     Dates: start: 20240625
  2. OXERVATE [Suspect]
     Active Substance: CENEGERMIN-BKBJ
  3. OXERVATE [Suspect]
     Active Substance: CENEGERMIN-BKBJ
  4. REFRESH CLASSIC [Concomitant]
     Active Substance: POLYVINYL ALCOHOL\POVIDONE
  5. POLYMYXIN B SUL-TRIMETHOPRIM [Concomitant]
  6. REGENECARE [Concomitant]
  7. VITAMIN C [Concomitant]
     Active Substance: ASCORBIC ACID
  8. CALCIUM [Concomitant]
     Active Substance: CALCIUM
     Dosage: 500(1250)
  9. PROBIOTICS NOS [Concomitant]
     Active Substance: PROBIOTICS NOS
     Dosage: 100 BILLION CELLS
  10. BIOTIN [Concomitant]
     Active Substance: BIOTIN
  11. VITAMIN B12 [Concomitant]
     Active Substance: CYANOCOBALAMIN
  12. MINERALS\VITAMINS [Concomitant]
     Active Substance: MINERALS\VITAMINS
     Dosage: .4-300-250
  13. PRAMIPEXOLE DIHYDROCHLORIDE [Concomitant]
     Active Substance: PRAMIPEXOLE DIHYDROCHLORIDE
  14. METOPROLOL SUCCINATE [Concomitant]
     Active Substance: METOPROLOL SUCCINATE
  15. FERROUS SULFATE [Concomitant]
     Active Substance: FERROUS SULFATE
     Dosage: 324(65)MG
  16. POTASSIUM CITRATE [Concomitant]
     Active Substance: POTASSIUM CITRATE
     Dosage: EXTENDED RELEASE
  17. ACETAMINOPHEN\OXYCODONE HYDROCHLORIDE [Concomitant]
     Active Substance: ACETAMINOPHEN\OXYCODONE HYDROCHLORIDE
  18. VALACYCLOVIR [Concomitant]
     Active Substance: VALACYCLOVIR HYDROCHLORIDE
  19. LORAZEPAM [Concomitant]
     Active Substance: LORAZEPAM
  20. ROSUVASTATIN CALCIUM [Concomitant]
     Active Substance: ROSUVASTATIN CALCIUM
  21. PREGABALIN [Concomitant]
     Active Substance: PREGABALIN
  22. FUROSEMIDE [Concomitant]
     Active Substance: FUROSEMIDE
  23. PREDNISONE [Concomitant]
     Active Substance: PREDNISONE
  24. LISINOPRIL [Concomitant]
     Active Substance: LISINOPRIL
  25. METHOTREXATE [Concomitant]
     Active Substance: METHOTREXATE
  26. AVENOVA WIPES [Concomitant]

REACTIONS (6)
  - Hospitalisation [Not Recovered/Not Resolved]
  - Eye pain [Unknown]
  - Wrong technique in product usage process [Not Recovered/Not Resolved]
  - Vision blurred [Unknown]
  - Eye discharge [Unknown]
  - Product dose omission issue [Unknown]

NARRATIVE: CASE EVENT DATE: 20240625
